FAERS Safety Report 10339140 (Version 2)
Quarter: 2014Q3

REPORT INFORMATION
  Report Type: Other
  Country: GR (occurrence: GR)
  Receive Date: 20140724
  Receipt Date: 20140724
  Transmission Date: 20150326
  Serious: Yes (Death)
  Sender: FDA-Public Use
  Company Number: GR-ACTELION-A-CH2014-100680

PATIENT
  Age: 33 Year
  Sex: Female

DRUGS (2)
  1. TRACLEER [Suspect]
     Active Substance: BOSENTAN\BOSENTAN MONOHYDRATE
     Indication: PULMONARY ARTERIAL HYPERTENSION
     Dosage: UNK
     Route: 048
  2. COUMARIN [Concomitant]
     Active Substance: COUMARIN
     Dosage: UNK

REACTIONS (3)
  - Condition aggravated [Unknown]
  - Right ventricular failure [Fatal]
  - Pulmonary arterial hypertension [Unknown]
